FAERS Safety Report 6477592-4 (Version None)
Quarter: 2009Q4

REPORT INFORMATION
  Report Type: 
  Country: None (occurrence: None)
  Receive Date: 20091203
  Receipt Date: 20091203
  Transmission Date: 20100525
  Serious: No
  Sender: FDA-Public Use
  Company Number: None

PATIENT
  Age: 43 Year
  Sex: Female
  Weight: 79.3795 kg

DRUGS (4)
  1. TOPAMAX [Suspect]
     Indication: ARTHRALGIA
     Dosage: 50 MG 1X/DAY AT BEDTIME PO
     Route: 048
     Dates: start: 20090301, end: 20090501
  2. TOPAMAX [Suspect]
     Indication: WEIGHT DECREASED
     Dosage: 50 MG 1X/DAY AT BEDTIME PO
     Route: 048
     Dates: start: 20090301, end: 20090501
  3. TOPAMAX [Suspect]
     Indication: ARTHRALGIA
     Dosage: 50 MG 1X/DAY AT BEDTIME PO
     Route: 048
     Dates: start: 20090701, end: 20091001
  4. TOPAMAX [Suspect]
     Indication: WEIGHT DECREASED
     Dosage: 50 MG 1X/DAY AT BEDTIME PO
     Route: 048
     Dates: start: 20090701, end: 20091001

REACTIONS (14)
  - ALOPECIA [None]
  - AMNESIA [None]
  - ANGER [None]
  - ANXIETY [None]
  - DECREASED APPETITE [None]
  - DISORIENTATION [None]
  - FEELING ABNORMAL [None]
  - HEADACHE [None]
  - INSOMNIA [None]
  - IRRITABILITY [None]
  - SUICIDAL IDEATION [None]
  - THINKING ABNORMAL [None]
  - VISUAL IMPAIRMENT [None]
  - WEIGHT DECREASED [None]
